FAERS Safety Report 10083695 (Version 5)
Quarter: 2015Q3

REPORT INFORMATION
  Report Type: Spontaneous
  Country: US (occurrence: US)
  Receive Date: 20140417
  Receipt Date: 20150925
  Transmission Date: 20151125
  Serious: No
  Sender: FDA-Public Use
  Company Number: US-PFIZER INC-2014106853

PATIENT
  Age: 52 Year
  Sex: Female
  Weight: 72.56 kg

DRUGS (2)
  1. CRESTOR [Suspect]
     Active Substance: ROSUVASTATIN CALCIUM
     Dosage: UNK
  2. XELJANZ [Suspect]
     Active Substance: TOFACITINIB CITRATE
     Indication: RHEUMATOID ARTHRITIS
     Dosage: 5 MG, 2X/DAY
     Route: 048
     Dates: start: 201311, end: 201406

REACTIONS (6)
  - Weight increased [Unknown]
  - Oedema peripheral [Unknown]
  - Therapeutic response unexpected [Unknown]
  - Swelling [Unknown]
  - Blood cholesterol abnormal [Unknown]
  - Blood cholesterol increased [Unknown]

NARRATIVE: CASE EVENT DATE: 201401
